FAERS Safety Report 4641205-4 (Version None)
Quarter: 2005Q2

REPORT INFORMATION
  Report Type: 
  Country: None (occurrence: None)
  Receive Date: 20050420
  Receipt Date: 20050420
  Transmission Date: 20051028
  Serious: Yes (Life-Threatening)
  Sender: FDA-Public Use
  Company Number: None

PATIENT
  Age: 83 Year
  Sex: Male
  Weight: 73.0291 kg

DRUGS (1)
  1. MORPHINE [Suspect]
     Indication: COLON CANCER METASTATIC
     Dosage: 3 MG /HR BASAL IV X INJ BOLUS Q15 MIN
     Dates: start: 20050321

REACTIONS (2)
  - INCORRECT DRUG ADMINISTRATION RATE [None]
  - MEDICATION ERROR [None]
